FAERS Safety Report 17405434 (Version 1)
Quarter: 2020Q1

REPORT INFORMATION
  Report Type: Spontaneous
  Country: CA (occurrence: CA)
  Receive Date: 20200212
  Receipt Date: 20200212
  Transmission Date: 20200409
  Serious: Yes (Other)
  Sender: FDA-Public Use
  Company Number: CA-TEVA-2020-CA-1183216

PATIENT
  Age: 77 Year
  Sex: Male

DRUGS (1)
  1. DOXORUBICIN [Suspect]
     Active Substance: DOXORUBICIN
     Indication: PLEOMORPHIC MALIGNANT FIBROUS HISTIOCYTOMA
     Route: 065

REACTIONS (2)
  - Malignant neoplasm progression [Unknown]
  - Pleomorphic malignant fibrous histiocytoma [Unknown]
